FAERS Safety Report 6091442-X (Version None)
Quarter: 2009Q1

REPORT INFORMATION
  Report Type: 
  Country: None (occurrence: None)
  Receive Date: 20090225
  Receipt Date: 20090219
  Transmission Date: 20090719
  Serious: Yes (Other)
  Sender: FDA-Public Use
  Company Number: US-ELI_LILLY_AND_COMPANY-US200901000292

PATIENT
  Sex: Female
  Weight: 98.866 kg

DRUGS (12)
  1. BYETTA [Suspect]
     Indication: TYPE 2 DIABETES MELLITUS
     Dosage: 5 UG, 2/D
     Route: 058
     Dates: start: 20060301, end: 20060401
  2. BYETTA [Suspect]
     Dosage: 10 UG, 2/D
     Route: 058
     Dates: start: 20060401, end: 20080821
  3. METFORMIN [Concomitant]
     Indication: TYPE 2 DIABETES MELLITUS
  4. LANTUS [Concomitant]
  5. GLIMEPIRIDE [Concomitant]
     Indication: TYPE 2 DIABETES MELLITUS
  6. PRAVASTATIN [Concomitant]
     Indication: HYPERLIPIDAEMIA
  7. EVISTA [Concomitant]
     Indication: OSTEOPOROSIS
  8. SYNTHROID [Concomitant]
     Indication: HYPOTHYROIDISM
  9. PREVACID [Concomitant]
  10. ENALAPRIL [Concomitant]
  11. LORAZEPAM [Concomitant]
  12. SERTRALINE [Concomitant]

REACTIONS (4)
  - ABDOMINAL PAIN UPPER [None]
  - HEPATIC STEATOSIS [None]
  - HIATUS HERNIA [None]
  - PANCREATIC NEOPLASM [None]
